FAERS Safety Report 8457345-8 (Version None)
Quarter: 2012Q2

REPORT INFORMATION
  Report Type: 
  Country: None (occurrence: None)
  Receive Date: 20120621
  Receipt Date: 20120614
  Transmission Date: 20120825
  Serious: Yes (Hospitalization)
  Sender: FDA-Public Use
  Company Number: US-BAXTER-2012BAX003577

PATIENT
  Sex: Female
  Weight: 67.2 kg

DRUGS (21)
  1. ZETIA [Concomitant]
     Route: 048
     Dates: start: 20120330
  2. NAMENDA [Concomitant]
     Route: 048
     Dates: start: 20090616
  3. EXELON [Concomitant]
     Route: 062
     Dates: start: 20080616
  4. ASCORBIC ACID [Concomitant]
     Indication: SUPPLEMENTATION THERAPY
     Route: 048
     Dates: start: 20041130
  5. ENABLEX [Concomitant]
     Route: 048
     Dates: start: 20120410, end: 20120416
  6. VITAMIN D [Concomitant]
     Indication: SUPPLEMENTATION THERAPY
     Route: 048
     Dates: start: 20090915
  7. GAMMAGARD LIQUID [Suspect]
     Route: 042
     Dates: start: 20120410
  8. GAMMAGARD LIQUID [Suspect]
     Route: 042
     Dates: start: 20110324, end: 20110908
  9. VITAMIN E [Concomitant]
     Indication: SUPPLEMENTATION THERAPY
     Route: 048
     Dates: start: 20041130
  10. GAMMAGARD LIQUID [Suspect]
     Route: 042
     Dates: start: 20110922, end: 20120410
  11. BONIVA [Concomitant]
     Indication: OSTEOPOROSIS
     Route: 048
     Dates: start: 20060601
  12. SEROQUEL [Concomitant]
     Route: 048
     Dates: start: 20101020, end: 20110919
  13. SEROQUEL [Concomitant]
     Route: 048
     Dates: start: 20111010
  14. R-FRACTION ALPHA LIPOIC ACID [Concomitant]
     Indication: SUPPLEMENTATION THERAPY
     Route: 048
     Dates: start: 20041130
  15. DAILY MULTIVITAMIN [Concomitant]
     Indication: SUPPLEMENTATION THERAPY
     Route: 048
     Dates: start: 19940101
  16. LEVOXYL [Concomitant]
     Indication: HYPERTHYROIDISM
     Route: 048
     Dates: start: 19890101
  17. RAZADYNE ER [Concomitant]
     Route: 048
     Dates: start: 20050715
  18. CALCIUM [Concomitant]
     Indication: SUPPLEMENTATION THERAPY
     Route: 048
     Dates: start: 20080515
  19. CITALOPRAM HYDROBROMIDE [Concomitant]
     Indication: DEPRESSION
     Route: 048
     Dates: start: 20020101
  20. COENZYME Q10 [Concomitant]
     Indication: SUPPLEMENTATION THERAPY
     Route: 048
     Dates: start: 20100101
  21. ENABLEX [Concomitant]
     Route: 048
     Dates: start: 20120330, end: 20120409

REACTIONS (1)
  - NORMAL PRESSURE HYDROCEPHALUS [None]
